FAERS Safety Report 22699822 (Version 4)
Quarter: 2023Q4

REPORT INFORMATION
  Report Type: Report from Study
  Country: US (occurrence: None)
  Receive Date: 20230713
  Receipt Date: 20231016
  Transmission Date: 20240110
  Serious: Yes (Death, Hospitalization)
  Sender: FDA-Public Use
  Company Number: US-ROCHE-3383653

PATIENT
  Sex: Female

DRUGS (3)
  1. ATEZOLIZUMAB [Suspect]
     Active Substance: ATEZOLIZUMAB
     Indication: Ovarian cancer
     Route: 065
     Dates: start: 20230629
  2. VISMODEGIB [Suspect]
     Active Substance: VISMODEGIB
     Indication: Ovarian cancer
     Route: 065
     Dates: start: 20230702
  3. TAZOBACTAM [Concomitant]
     Active Substance: TAZOBACTAM

REACTIONS (4)
  - Small intestinal obstruction [Fatal]
  - Peritonitis [Fatal]
  - Nausea [Not Recovered/Not Resolved]
  - Vomiting [Not Recovered/Not Resolved]

NARRATIVE: CASE EVENT DATE: 20230702
